FAERS Safety Report 7991535-3 (Version None)
Quarter: 2011Q4

REPORT INFORMATION
  Report Type: 
  Country: None (occurrence: None)
  Receive Date: 20111219
  Receipt Date: 20111214
  Transmission Date: 20120403
  Serious: Yes (Other)
  Sender: FDA-Public Use
  Company Number: US-ROCHE-795595

PATIENT
  Sex: Female
  Weight: 46.308 kg

DRUGS (2)
  1. ACCUTANE [Suspect]
     Indication: ACNE
     Route: 065
     Dates: start: 19851201, end: 19860301
  2. ACCUTANE [Suspect]
     Dates: start: 19860101, end: 19880101

REACTIONS (6)
  - COLITIS ULCERATIVE [None]
  - RECTAL POLYP [None]
  - DEPRESSION [None]
  - INFLAMMATORY BOWEL DISEASE [None]
  - IRRITABLE BOWEL SYNDROME [None]
  - MENTAL DISORDER [None]
